FAERS Safety Report 9220378 (Version 1)
Quarter: 2013Q1

REPORT INFORMATION
  Report Type: Spontaneous
  Country: US (occurrence: None)
  Receive Date: 20120831
  Receipt Date: 20120831
  Transmission Date: 20140127
  Serious: No
  Sender: FDA-Public Use
  Company Number: 1000031196

PATIENT
  Age: 71 Year
  Sex: Female

DRUGS (8)
  1. DALIRESP [Suspect]
     Indication: CHRONIC OBSTRUCTIVE PULMONARY DISEASE
     Route: 048
     Dates: start: 201205
  2. ALBUTEROL [Suspect]
     Indication: CHRONIC OBSTRUCTIVE PULMONARY DISEASE
     Dates: start: 201205, end: 20120607
  3. SYMBICORT (BUDESONIDE W/FORMOTEROL FUMARATE) [Concomitant]
  4. SPIRIVA (TIOTROPIUM BROMIDE) (TIOTROPIUM BROMIDE) [Concomitant]
  5. LOVASTATIN (LOVASTATIN) [Concomitant]
  6. CITALOPRAM [Concomitant]
  7. XOPENEX (LEVOSALBUTAMOL HYDROCHLORIDE) [Concomitant]
  8. VERAPAMIL(VERAPAMIL)(VERAPAMIL) [Concomitant]

REACTIONS (1)
  - Heart rate increased [None]
